FAERS Safety Report 7280322-X (Version None)
Quarter: 2011Q1

REPORT INFORMATION
  Report Type: 
  Country: None (occurrence: None)
  Receive Date: 20110208
  Receipt Date: 20110203
  Transmission Date: 20110831
  Serious: Yes (Hospitalization, Other)
  Sender: FDA-Public Use
  Company Number: US-PFIZER INC-2010158602

PATIENT
  Sex: Female

DRUGS (2)
  1. CHANTIX [Suspect]
     Indication: SMOKING CESSATION THERAPY
     Dosage: 0.5MG/1MG
     Dates: start: 20071101, end: 20080101
  2. PREMARIN [Concomitant]
     Indication: HORMONE REPLACEMENT THERAPY
     Dosage: UNK
     Dates: start: 20050101, end: 20090101

REACTIONS (6)
  - SUICIDE ATTEMPT [None]
  - INTENTIONAL OVERDOSE [None]
  - DEPRESSION [None]
  - ANXIETY [None]
  - INSOMNIA [None]
  - AGITATION [None]
